FAERS Safety Report 6285981-6 (Version None)
Quarter: 2009Q3

REPORT INFORMATION
  Report Type: 
  Country: None (occurrence: None)
  Receive Date: 20090728
  Receipt Date: 20090724
  Transmission Date: 20100115
  Serious: Yes (Life-Threatening, Hospitalization)
  Sender: FDA-Public Use
  Company Number: AT-JNJFOC-20090707588

PATIENT
  Age: 84 Year
  Sex: Male
  Weight: 73 kg

DRUGS (7)
  1. RISPERDAL [Suspect]
     Indication: DRUG USE FOR UNKNOWN INDICATION
     Route: 048
  2. DOMINAL [Suspect]
     Indication: DRUG USE FOR UNKNOWN INDICATION
     Route: 048
  3. EUTHYROX [Concomitant]
     Route: 048
  4. LASILACTON [Concomitant]
     Route: 048
  5. MIRTABENE [Concomitant]
     Route: 048
  6. PASPERTIN [Concomitant]
     Route: 065
  7. OMEPRAZOLE [Concomitant]
     Route: 065

REACTIONS (3)
  - CONFUSIONAL STATE [None]
  - RESPIRATORY FAILURE [None]
  - SOMNOLENCE [None]
